FAERS Safety Report 12737954 (Version 2)
Quarter: 2016Q3

REPORT INFORMATION
  Report Type: Spontaneous
  Country: US (occurrence: US)
  Receive Date: 20160913
  Receipt Date: 20160923
  Transmission Date: 20161109
  Serious: No
  Sender: FDA-Public Use
  Company Number: US-GLAXOSMITHKLINE-US2016131796

PATIENT
  Age: 66 Year
  Sex: Male

DRUGS (2)
  1. NODOZ [Suspect]
     Active Substance: CAFFEINE
     Indication: SOMNOLENCE
  2. NODOZ [Suspect]
     Active Substance: CAFFEINE
     Indication: HYPERVIGILANCE
     Dosage: UNK
     Route: 048
     Dates: start: 2015

REACTIONS (1)
  - Incorrect drug administration duration [Unknown]
